FAERS Safety Report 7784666-4 (Version None)
Quarter: 2011Q3

REPORT INFORMATION
  Report Type: 
  Country: None (occurrence: None)
  Receive Date: 20110926
  Receipt Date: 20110919
  Transmission Date: 20111222
  Serious: Yes (Hospitalization)
  Sender: FDA-Public Use
  Company Number: A0945144A

PATIENT
  Age: 35 Year
  Sex: Female

DRUGS (1)
  1. ASPIRIN + CAFFEINE + SALICYLAMIDE POWDER (ASPIRIN+CAFFEINE+SALICYLA) [Suspect]
     Indication: ORAL PAIN
     Dosage: SINGLE DOSE

REACTIONS (7)
  - ORAL PAIN [None]
  - FLUID RETENTION [None]
  - MALNUTRITION [None]
  - BLOOD ALBUMIN DECREASED [None]
  - WHITE BLOOD CELL COUNT DECREASED [None]
  - BURNS THIRD DEGREE [None]
  - FEEDING DISORDER [None]
